FAERS Safety Report 4891567-8 (Version None)
Quarter: 2006Q1

REPORT INFORMATION
  Report Type: 
  Country: None (occurrence: None)
  Receive Date: 20060125
  Receipt Date: 20010118
  Transmission Date: 20060701
  Serious: Yes (Hospitalization)
  Sender: FDA-Public Use
  Company Number: AU-MERCK-01013492

PATIENT
  Age: 80 Year
  Sex: Female
  Weight: 51 kg

DRUGS (4)
  1. FOSAMAX [Suspect]
     Indication: OSTEOPOROSIS
     Route: 048
     Dates: start: 20001101, end: 20001201
  2. FOSAMAX [Suspect]
     Route: 048
     Dates: start: 20010101
  3. FOSAMAX [Suspect]
     Route: 048
  4. RANITIDINE HYDROCHLORIDE [Concomitant]
     Indication: GASTROOESOPHAGEAL REFLUX DISEASE
     Route: 048

REACTIONS (5)
  - DRUG INEFFECTIVE [None]
  - NAUSEA [None]
  - NECK PAIN [None]
  - SHOULDER PAIN [None]
  - SPINAL FRACTURE [None]
